FAERS Safety Report 8876141 (Version 1)
Quarter: 2012Q4

REPORT INFORMATION
  Report Type: 
  Country: US (occurrence: US)
  Receive Date: 20121023
  Receipt Date: 20121023
  Transmission Date: 20130627
  Serious: Yes (Death, Life-Threatening, Hospitalization)
  Sender: FDA-Public Use
  Company Number: US-ROXANE LABORATORIES, INC.-2012-RO-02042RO

PATIENT
  Age: 53 Year
  Sex: Female

DRUGS (2)
  1. PREDNISONE [Suspect]
     Indication: RETINAL PIGMENT EPITHELIOPATHY
     Dosage: 80 mg
     Route: 048
  2. PREDNISONE [Suspect]
     Route: 048

REACTIONS (5)
  - Death [Fatal]
  - Respiratory distress [Unknown]
  - Vasculitis cerebral [Unknown]
  - Cerebral infarction [Unknown]
  - Brain herniation [Unknown]
